FAERS Safety Report 6676634-0 (Version None)
Quarter: 2010Q2

REPORT INFORMATION
  Report Type: 
  Country: None (occurrence: None)
  Receive Date: 20100408
  Receipt Date: 20100329
  Transmission Date: 20101027
  Serious: Yes (Death, Hospitalization)
  Sender: FDA-Public Use
  Company Number: 2009AC000029

PATIENT
  Age: 49 Year
  Sex: Male

DRUGS (64)
  1. DIGOXIN [Suspect]
     Dosage: 0.125 MG; PO
     Route: 048
     Dates: start: 20060301
  2. DIGOXIN [Suspect]
     Dosage: .25 MG, QD; PO
     Route: 048
     Dates: start: 20060401
  3. DIGOXIN [Suspect]
     Dosage: .375 MG, QD; PO
     Route: 048
     Dates: start: 20060301
  4. DIGOXIN [Suspect]
     Dosage: 0.25 MG, QD; PO
     Route: 048
     Dates: start: 20060101
  5. LOPRESSOR [Concomitant]
  6. AMIODARONE [Concomitant]
  7. LASIX [Concomitant]
  8. LISINOPRIL [Concomitant]
  9. DIOVAN [Concomitant]
  10. SPIRONOLACTONE [Concomitant]
  11. COREG [Concomitant]
  12. POTASSIUM [Concomitant]
  13. HYDROCODONE BITARTRATE [Concomitant]
  14. COUMADIN [Concomitant]
  15. ADAVIR [Concomitant]
  16. POTASSIUM CHLORIDE [Concomitant]
  17. FUROSEMIDE [Concomitant]
  18. CYCLOBENZAPRINE [Concomitant]
  19. ADIPEX [Concomitant]
  20. PONDIMIN [Concomitant]
  21. FENPHEN [Concomitant]
  22. SELDANE [Concomitant]
  23. PSEUDOEPINEPHRINE [Concomitant]
  24. VANCENASE [Concomitant]
  25. ZESTORETIC [Concomitant]
  26. BREATHAIRE [Concomitant]
  27. SUDAFED 12 HOUR [Concomitant]
  28. ASPIRIN [Concomitant]
  29. IBUPROFEN [Concomitant]
  30. ALBUTEROL [Concomitant]
  31. ORUVAIL [Concomitant]
  32. ALLEGRA [Concomitant]
  33. NASONEX [Concomitant]
  34. METFORMIN [Concomitant]
  35. WELLBUTRIN [Concomitant]
  36. ETODOLAC [Concomitant]
  37. CELEBREX [Concomitant]
  38. NEXIUM [Concomitant]
  39. DOPAMINE HCL [Concomitant]
  40. ENOXAPARIN SODIUM [Concomitant]
  41. ATROPINE [Concomitant]
  42. EPINEPHRINE [Concomitant]
  43. NEO-SYNEPHRINOL [Concomitant]
  44. FENTANYL [Concomitant]
  45. VERSED [Concomitant]
  46. GLYBURIDE [Concomitant]
  47. INSULIN [Concomitant]
  48. LORATADINE [Concomitant]
  49. PANTOPRAZOLE [Concomitant]
  50. BUSPIRONE HCL [Concomitant]
  51. NARCAN [Concomitant]
  52. ROMAZION [Concomitant]
  53. HALDOL [Concomitant]
  54. MEDROXYPROGESTERONE [Concomitant]
  55. THEOPHYLLIINE [Concomitant]
  56. VANCOMYCIN [Concomitant]
  57. PREDNISONE [Concomitant]
  58. LINEZOLID [Concomitant]
  59. PROPOXYPHENE HCL [Concomitant]
  60. XOPENEX [Concomitant]
  61. SOLU-MEDROL [Concomitant]
  62. KAYEXALATE [Concomitant]
  63. LEVOFLOXACIN [Concomitant]
  64. HEPARIN [Concomitant]

REACTIONS (63)
  - ABDOMINAL DISTENSION [None]
  - AGITATION [None]
  - AMNESIA [None]
  - ARRHYTHMIA [None]
  - ATELECTASIS [None]
  - ATRIAL FLUTTER [None]
  - BRADYCARDIA [None]
  - CARDIAC ARREST [None]
  - CARDIAC FAILURE CONGESTIVE [None]
  - CARDIOACTIVE DRUG LEVEL INCREASED [None]
  - CHRONIC OBSTRUCTIVE PULMONARY DISEASE [None]
  - COMA [None]
  - CONFUSIONAL STATE [None]
  - CORONARY ARTERY DISEASE [None]
  - CULTURE URINE POSITIVE [None]
  - CYANOSIS [None]
  - DECUBITUS ULCER [None]
  - DEEP VEIN THROMBOSIS [None]
  - DISORIENTATION [None]
  - DIZZINESS [None]
  - DYSARTHRIA [None]
  - DYSURIA [None]
  - FATIGUE [None]
  - FLUID OVERLOAD [None]
  - GENERALISED OEDEMA [None]
  - HYPERCAPNIA [None]
  - HYPERGLYCAEMIA [None]
  - HYPERKALAEMIA [None]
  - HYPERTENSION [None]
  - HYPOAESTHESIA [None]
  - HYPOTENSION [None]
  - HYPOXIA [None]
  - INTERMITTENT CLAUDICATION [None]
  - LETHARGY [None]
  - LOSS OF CONSCIOUSNESS [None]
  - LUNG CONSOLIDATION [None]
  - METABOLIC SYNDROME [None]
  - MYOCARDIAL INFARCTION [None]
  - NAUSEA [None]
  - NO THERAPEUTIC RESPONSE [None]
  - OEDEMA [None]
  - OEDEMA PERIPHERAL [None]
  - ORTHOPNOEA [None]
  - OXYGEN SATURATION DECREASED [None]
  - PNEUMONIA [None]
  - PYREXIA [None]
  - RASH [None]
  - RENAL FAILURE [None]
  - RESPIRATORY FAILURE [None]
  - SOMNOLENCE [None]
  - STAPHYLOCOCCAL INFECTION [None]
  - TACHYCARDIA [None]
  - THROMBOCYTOPENIA [None]
  - TREATMENT NONCOMPLIANCE [None]
  - UNRESPONSIVE TO STIMULI [None]
  - VENOUS INSUFFICIENCY [None]
  - VENTRICULAR FIBRILLATION [None]
  - VENTRICULAR HYPOKINESIA [None]
  - VENTRICULAR TACHYCARDIA [None]
  - VIRAL INFECTION [None]
  - VISUAL IMPAIRMENT [None]
  - VOMITING [None]
  - WEIGHT INCREASED [None]
